FAERS Safety Report 8979007 (Version 1)
Quarter: 2012Q4

REPORT INFORMATION
  Report Type: 
  Country: US (occurrence: US)
  Receive Date: 20121220
  Receipt Date: 20121220
  Transmission Date: 20130627
  Serious: Yes (Hospitalization)
  Sender: FDA-Public Use
  Company Number: US-AMGEN-USASP2012081534

PATIENT
  Sex: Male

DRUGS (3)
  1. NEUPOGEN [Suspect]
     Indication: PRODUCT USED FOR UNKNOWN INDICATION
     Dosage: 480 mug weekly
     Dates: start: 2011
  2. PROGRAF [Suspect]
     Dosage: UNK
  3. RAPAMUNE [Suspect]
     Dosage: UNK

REACTIONS (6)
  - Renal failure [Unknown]
  - Escherichia infection [Unknown]
  - Pyrexia [Unknown]
  - Vomiting [Unknown]
  - Gastrointestinal disorder [Unknown]
  - Visual acuity reduced [Unknown]
